FAERS Safety Report 6480798-1 (Version None)
Quarter: 2009Q4

REPORT INFORMATION
  Report Type: 
  Country: None (occurrence: None)
  Receive Date: 20091203
  Receipt Date: 20091130
  Transmission Date: 20100525
  Serious: Yes (Hospitalization)
  Sender: FDA-Public Use
  Company Number: 2009SU0229FU1

PATIENT
  Age: 83 Year
  Sex: Female
  Weight: 67.1324 kg

DRUGS (7)
  1. SULAR [Suspect]
     Indication: HYPERTENSION
     Dosage: 17 MG, DAILY8.5 MG, TWICE DAILY
     Dates: start: 20090701, end: 20090901
  2. SULAR [Suspect]
     Indication: HYPERTENSION
     Dates: start: 20091014
  3. SULAR [Suspect]
     Indication: HYPERTENSION
     Dosage: 8.5 MG,DAILY,ORAL
     Route: 048
     Dates: start: 20070101, end: 20090701
  4. TOPROL-XL [Suspect]
     Indication: HYPERTENSION
     Dosage: 50MG,DAILY,ORAL
     Route: 048
     Dates: end: 20091101
  5. MICARDIS [Suspect]
  6. HYDROCHLOROTHIAZIDE [Concomitant]
  7. SYNTHROID [Suspect]

REACTIONS (8)
  - BLOOD PRESSURE INADEQUATELY CONTROLLED [None]
  - BLOOD PRESSURE SYSTOLIC INCREASED [None]
  - FLUSHING [None]
  - HEADACHE [None]
  - HEART RATE DECREASED [None]
  - MALAISE [None]
  - NAUSEA [None]
  - PARTNER STRESS [None]
